FAERS Safety Report 13841164 (Version 1)
Quarter: 2017Q3

REPORT INFORMATION
  Report Type: Spontaneous
  Country: US (occurrence: US)
  Receive Date: 20170807
  Receipt Date: 20170807
  Transmission Date: 20171127
  Serious: No
  Sender: FDA-Public Use
  Company Number: US-TEVA-794359ACC

PATIENT
  Sex: Female
  Weight: 83.54 kg

DRUGS (2)
  1. TAKE ACTION [Suspect]
     Active Substance: LEVONORGESTREL
     Indication: POST COITAL CONTRACEPTION
     Dates: start: 20170722, end: 20170722
  2. DIFLUCAN [Concomitant]
     Active Substance: FLUCONAZOLE
     Indication: IRRITABLE BOWEL SYNDROME

REACTIONS (1)
  - Menstrual disorder [Not Recovered/Not Resolved]
